FAERS Safety Report 12395505 (Version 1)
Quarter: 2016Q2

REPORT INFORMATION
  Report Type: Spontaneous
  Country: ZA (occurrence: ZA)
  Receive Date: 20160523
  Receipt Date: 20160523
  Transmission Date: 20160815
  Serious: Yes (Other)
  Sender: FDA-Public Use
  Company Number: ZA-SA-2016SA093221

PATIENT
  Sex: Female
  Weight: 84 kg

DRUGS (1)
  1. CLEXANE [Suspect]
     Active Substance: ENOXAPARIN SODIUM
     Indication: THROMBOSIS PROPHYLAXIS
     Dosage: DOSING IN PREVIOUS PREGNANCY
     Route: 058

REACTIONS (5)
  - Exposure during pregnancy [Unknown]
  - Gestational diabetes [Unknown]
  - Premature labour [Unknown]
  - Pre-eclampsia [Unknown]
  - Off label use [Unknown]
